FAERS Safety Report 6106673-X (Version None)
Quarter: 2009Q1

REPORT INFORMATION
  Report Type: 
  Country: None (occurrence: None)
  Receive Date: 20090304
  Receipt Date: 20090302
  Transmission Date: 20090719
  Serious: Yes (Life-Threatening, Hospitalization)
  Sender: FDA-Public Use
  Company Number: SP02280

PATIENT
  Age: 69 Year
  Sex: Female

DRUGS (1)
  1. MOVIPREP [Suspect]
     Indication: COLONOSCOPY
     Dosage: 1 LIT, ORAL
     Route: 048
     Dates: start: 20090112, end: 20090112

REACTIONS (17)
  - ABDOMINAL PAIN [None]
  - BLOOD CREATININE INCREASED [None]
  - BLOOD THYROID STIMULATING HORMONE INCREASED [None]
  - DECREASED APPETITE [None]
  - DIARRHOEA [None]
  - DYSGEUSIA [None]
  - ELECTROLYTE IMBALANCE [None]
  - HAEMOGLOBIN INCREASED [None]
  - HYPONATRAEMIA [None]
  - MEAN CELL HAEMOGLOBIN CONCENTRATION INCREASED [None]
  - NAUSEA [None]
  - RED BLOOD CELL COUNT INCREASED [None]
  - SOMNOLENCE [None]
  - SYNCOPE [None]
  - VOMITING [None]
  - WEIGHT DECREASED [None]
  - WHITE BLOOD CELL COUNT INCREASED [None]
